FAERS Safety Report 9853684 (Version 1)
Quarter: 2014Q1

REPORT INFORMATION
  Report Type: Spontaneous
  Country: US (occurrence: US)
  Receive Date: 20140129
  Receipt Date: 20140129
  Transmission Date: 20141002
  Serious: No
  Sender: FDA-Public Use
  Company Number: US-GLAXOSMITHKLINE-A1005228A

PATIENT
  Age: 42 Year
  Sex: Female

DRUGS (11)
  1. WELLBUTRIN [Suspect]
     Indication: DEPRESSION
     Dosage: 100MG PER DAY
     Route: 048
     Dates: start: 20121209
  2. ATIVAN [Concomitant]
  3. LIPITOR [Concomitant]
  4. UNKNOWN MEDICATION [Concomitant]
  5. ASPIRIN [Concomitant]
  6. METOPROLOL [Concomitant]
  7. NORCO [Concomitant]
  8. PEPCID [Concomitant]
  9. PANTOPRAZOLE [Concomitant]
  10. FERROUS SULFATE [Concomitant]
  11. PHAZYME [Concomitant]

REACTIONS (2)
  - Pain [Not Recovered/Not Resolved]
  - Palpitations [Unknown]
